FAERS Safety Report 24720587 (Version 2)
Quarter: 2025Q1

REPORT INFORMATION
  Report Type: Spontaneous
  Country: US (occurrence: US)
  Receive Date: 20241211
  Receipt Date: 20250110
  Transmission Date: 20250409
  Serious: Yes (Other)
  Sender: GLENMARK
  Company Number: US-GLENMARK PHARMACEUTICALS-2024GMK096022

PATIENT

DRUGS (1)
  1. ETHINYL ESTRADIOL\NORGESTIMATE [Suspect]
     Active Substance: ETHINYL ESTRADIOL\NORGESTIMATE
     Indication: Hormone level abnormal
     Route: 048

REACTIONS (4)
  - Anaphylactic reaction [Unknown]
  - Allergic reaction to excipient [Unknown]
  - Vomiting [Unknown]
  - Product use in unapproved indication [Unknown]
